FAERS Safety Report 4945652-2 (Version None)
Quarter: 2006Q1

REPORT INFORMATION
  Report Type: 
  Country: None (occurrence: None)
  Receive Date: 20060316
  Receipt Date: 20060308
  Transmission Date: 20060701
  Serious: Yes (Other)
  Sender: FDA-Public Use
  Company Number: US-MERCK-0603USA01476

PATIENT
  Sex: Female

DRUGS (2)
  1. VIOXX [Suspect]
     Indication: ARTHRALGIA
     Route: 048
     Dates: start: 19990901
  2. VIOXX [Suspect]
     Indication: ARTHRITIS
     Route: 048
     Dates: start: 19990901

REACTIONS (6)
  - ANGIOPATHY [None]
  - ANOREXIA [None]
  - DIARRHOEA [None]
  - SLEEP DISORDER [None]
  - SUBCLAVIAN VEIN THROMBOSIS [None]
  - THROMBOSIS [None]
